FAERS Safety Report 6639935-8 (Version None)
Quarter: 2010Q1

REPORT INFORMATION
  Report Type: 
  Country: None (occurrence: None)
  Receive Date: 20100318
  Receipt Date: 20100308
  Transmission Date: 20100710
  Serious: Yes (Hospitalization)
  Sender: FDA-Public Use
  Company Number: JP-JNJFOC-20100302258

PATIENT
  Sex: Male
  Weight: 68 kg

DRUGS (2)
  1. INFLIXIMAB [Suspect]
     Indication: ANKYLOSING SPONDYLITIS
     Route: 042
  2. INFLIXIMAB [Suspect]
     Dosage: 29TH INFUSION OF INFLIXIMAB
     Route: 042

REACTIONS (2)
  - ANGINA UNSTABLE [None]
  - CORONARY ARTERY STENOSIS [None]
